FAERS Safety Report 11277139 (Version 1)
Quarter: 2015Q3

REPORT INFORMATION
  Report Type: Spontaneous
  Country: NL (occurrence: NL)
  Receive Date: 20150716
  Receipt Date: 20150716
  Transmission Date: 20151125
  Serious: Yes (Life-Threatening, Hospitalization)
  Sender: FDA-Public Use
  Company Number: NL-TEVA-576665ISR

PATIENT
  Age: 49 Year
  Sex: Female
  Weight: 61 kg

DRUGS (11)
  1. METOCLOPRAMIDE TABLET 10MG [Concomitant]
     Active Substance: METOCLOPRAMIDE
     Dosage: 10 MILLIGRAM DAILY; ONCE DAILY 10 MG AS REQUIRED
     Route: 048
  2. LIDOCAINE VASELINECREME 30MG/G [Concomitant]
     Route: 003
  3. OXYCONTIN TABLET MVA   5MG [Concomitant]
     Dosage: 10 MILLIGRAM DAILY; TWICE DAILY ONE
     Route: 048
  4. CISPLATINE INFUUS [Suspect]
     Active Substance: CISPLATIN
     Indication: CERVIX CARCINOMA
     Dosage: 117 MG PER INFUSION DURING 3 HOURS
     Route: 042
     Dates: start: 20150622
  5. OXYNORM CAPSULE  5MG [Concomitant]
     Active Substance: OXYCODONE HYDROCHLORIDE
     Dosage: 5 MILLIGRAM DAILY; ONCE DAILY ONE AS REQUIRED
     Route: 048
  6. FERROFUMARAAT TABLET 200MG [Concomitant]
     Dosage: 400 MILLIGRAM DAILY; TWICE DAILY ONE
     Route: 048
  7. PANTOPRAZOL TABLET MSR 40MG [Concomitant]
     Active Substance: PANTOPRAZOLE SODIUM
     Dosage: 40 MILLIGRAM DAILY; ONCE DAILY ONE
     Route: 048
  8. METOPROLOL TABLET   50MG [Concomitant]
     Dosage: 50 MILLIGRAM DAILY; TWICE DAILY HALF
     Route: 048
  9. PARACETAMOL TABLET  500MG [Concomitant]
     Active Substance: ACETAMINOPHEN
     Dosage: FOUR TIMES DAILY TWO
     Route: 048
  10. FUROSEMIDE TABLET 40MG [Concomitant]
     Active Substance: FUROSEMIDE
     Dosage: 40 MILLIGRAM DAILY; ONCE DAILY ONE
     Route: 048
  11. PACLITAXEL INFUUS [Suspect]
     Active Substance: PACLITAXEL
     Indication: CERVIX CARCINOMA
     Dosage: PACLITAXEL 90MG/M2 PER INFUSION DURING 3,5 HOURS
     Route: 042
     Dates: start: 20150629, end: 20150629

REACTIONS (3)
  - Electrocardiogram change [Recovered/Resolved with Sequelae]
  - Myocardial necrosis marker increased [Recovered/Resolved with Sequelae]
  - Chest pain [Recovered/Resolved with Sequelae]

NARRATIVE: CASE EVENT DATE: 20150629
